FAERS Safety Report 14907199 (Version 1)
Quarter: 2018Q2

REPORT INFORMATION
  Report Type: Spontaneous
  Country: FR (occurrence: FR)
  Receive Date: 20180517
  Receipt Date: 20180517
  Transmission Date: 20180711
  Serious: Yes (Hospitalization)
  Sender: FDA-Public Use
  Company Number: FR-SUN PHARMACEUTICAL INDUSTRIES LTD-2018RR-173019

PATIENT
  Age: 15 Year
  Sex: Female

DRUGS (3)
  1. RISPERIDONE. [Suspect]
     Active Substance: RISPERIDONE
     Indication: SUICIDE ATTEMPT
     Dosage: 36 MG, IN TOTAL
     Route: 048
     Dates: start: 20180213, end: 20180213
  2. ESCITALOPRAM [Suspect]
     Active Substance: ESCITALOPRAM OXALATE
     Indication: SUICIDE ATTEMPT
     Dosage: 9 MG, IN TOTAL
     Route: 048
     Dates: start: 20180213, end: 20180213
  3. THERALENE [Concomitant]
     Active Substance: TRIMEPRAZINE
     Indication: PRODUCT USED FOR UNKNOWN INDICATION
     Dosage: POSOLOGIE NON PRECISEE ()
     Route: 048

REACTIONS (4)
  - Dyskinesia [Recovered/Resolved]
  - Mydriasis [Recovered/Resolved]
  - Extrapyramidal disorder [Recovered/Resolved]
  - Sinus tachycardia [Recovered/Resolved]

NARRATIVE: CASE EVENT DATE: 20180214
